FAERS Safety Report 6510069-6 (Version None)
Quarter: 2009Q4

REPORT INFORMATION
  Report Type: 
  Country: None (occurrence: None)
  Receive Date: 20091222
  Receipt Date: 20091106
  Transmission Date: 20100525
  Serious: No
  Sender: FDA-Public Use
  Company Number: US-BAUSCH-2009BL005773

PATIENT
  Age: 79 Year
  Sex: Male
  Weight: 88 kg

DRUGS (3)
  1. BESIVANCE [Suspect]
     Indication: EYE INFECTION
     Route: 047
     Dates: start: 20091105, end: 20091106
  2. LOTEMAX [Concomitant]
     Indication: EYE INFLAMMATION
     Route: 047
     Dates: start: 20091105
  3. OPTIVE [Concomitant]
     Indication: DRY EYE
     Route: 047
     Dates: start: 20091105

REACTIONS (4)
  - CONDITION AGGRAVATED [None]
  - EYE PAIN [None]
  - EYE SWELLING [None]
  - OCULAR HYPERAEMIA [None]
